FAERS Safety Report 10470717 (Version 2)
Quarter: 2014Q3

REPORT INFORMATION
  Report Type: Spontaneous
  Country: US (occurrence: US)
  Receive Date: 20140923
  Receipt Date: 20140923
  Transmission Date: 20150326
  Serious: Yes (Hospitalization)
  Sender: FDA-Public Use
  Company Number: US-GLAXOSMITHKLINE-A0890110A

PATIENT
  Sex: Male

DRUGS (2)
  1. AVANDIA [Suspect]
     Active Substance: ROSIGLITAZONE MALEATE
     Indication: DIABETES MELLITUS
     Dosage: 8MG PER DAY
     Dates: start: 1997, end: 201003
  2. ROSIGLITAZONE [Suspect]
     Active Substance: ROSIGLITAZONE
     Indication: DIABETES MELLITUS
     Dosage: 4MG PER DAY
     Dates: start: 20090811, end: 20090817

REACTIONS (7)
  - Dysaesthesia [Unknown]
  - Cognitive disorder [Unknown]
  - Thalamic infarction [Unknown]
  - Cerebrovascular accident [Not Recovered/Not Resolved]
  - Cerebral infarction [Unknown]
  - Ataxia [Unknown]
  - Bipolar disorder [Unknown]
